FAERS Safety Report 18128123 (Version 1)
Quarter: 2020Q3

REPORT INFORMATION
  Report Type: Report from Study
  Country: US (occurrence: US)
  Receive Date: 20200810
  Receipt Date: 20200810
  Transmission Date: 20201103
  Serious: Yes (Hospitalization, Other)
  Sender: FDA-Public Use
  Company Number: US-BIOGEN-2020BI00905342

PATIENT
  Sex: Female

DRUGS (1)
  1. TECFIDERA [Suspect]
     Active Substance: DIMETHYL FUMARATE
     Indication: MULTIPLE SCLEROSIS
     Route: 048

REACTIONS (25)
  - Demyelination [Not Recovered/Not Resolved]
  - Fall [Recovered/Resolved]
  - Flushing [Recovered/Resolved]
  - Dysuria [Recovered/Resolved]
  - Influenza like illness [Recovered/Resolved]
  - Fatigue [Not Recovered/Not Resolved]
  - White blood cell count decreased [Recovered/Resolved]
  - Blood pressure decreased [Recovered/Resolved]
  - Vitamin D deficiency [Not Recovered/Not Resolved]
  - Fibula fracture [Unknown]
  - Bone disorder [Unknown]
  - Anaphylactic shock [Recovered/Resolved]
  - Influenza [Recovered/Resolved]
  - Weight increased [Not Recovered/Not Resolved]
  - Malaise [Not Recovered/Not Resolved]
  - Multiple sclerosis relapse [Recovered/Resolved]
  - Erythema [Recovered/Resolved]
  - Central nervous system lesion [Not Recovered/Not Resolved]
  - Asthma [Not Recovered/Not Resolved]
  - Arthropathy [Unknown]
  - Bronchitis [Recovered/Resolved]
  - Alopecia [Unknown]
  - Pneumonia [Recovered/Resolved]
  - Urinary retention [Recovered/Resolved]
  - Memory impairment [Not Recovered/Not Resolved]
